FAERS Safety Report 8151447-1 (Version None)
Quarter: 2012Q1

REPORT INFORMATION
  Report Type: 
  Country: None (occurrence: None)
  Receive Date: 20120220
  Receipt Date: 20120214
  Transmission Date: 20120608
  Serious: Yes (Life-Threatening, Hospitalization, Other)
  Sender: FDA-Public Use
  Company Number: US-BAXTER-2011BH038760

PATIENT
  Age: 63 Year
  Sex: Female
  Weight: 55 kg

DRUGS (3)
  1. GAMMAGARD LIQUID [Suspect]
     Indication: MULTIPLE MYELOMA
     Route: 042
     Dates: start: 20111202, end: 20111202
  2. GAMMAGARD LIQUID [Suspect]
     Route: 042
     Dates: start: 20111031
  3. LENALIDOMIDE [Suspect]
     Indication: PRODUCT USED FOR UNKNOWN INDICATION
     Route: 065

REACTIONS (6)
  - PNEUMONIA [None]
  - PYREXIA [None]
  - RASH [None]
  - CHILLS [None]
  - URTICARIA [None]
  - WHITE BLOOD CELL COUNT DECREASED [None]
